FAERS Safety Report 24740112 (Version 4)
Quarter: 2025Q1

REPORT INFORMATION
  Report Type: Spontaneous
  Country: US (occurrence: US)
  Receive Date: 20241216
  Receipt Date: 20250321
  Transmission Date: 20250409
  Serious: No
  Sender: APELLIS PHARMACEUTICALS
  Company Number: US-APELLIS-2024-APL-0001627

PATIENT

DRUGS (5)
  1. SYFOVRE [Suspect]
     Active Substance: PEGCETACOPLAN
     Indication: Product used for unknown indication
     Route: 065
     Dates: start: 20241121
  2. SYFOVRE [Suspect]
     Active Substance: PEGCETACOPLAN
     Route: 065
     Dates: start: 20241202
  3. MAXZIDE [Concomitant]
     Active Substance: HYDROCHLOROTHIAZIDE\TRIAMTERENE
     Indication: Product used for unknown indication
  4. Macuhealth [Concomitant]
     Indication: Product used for unknown indication
  5. CALCIUM\VITAMIN D [Concomitant]
     Active Substance: CALCIUM\VITAMIN D
     Indication: Product used for unknown indication

REACTIONS (12)
  - Adverse reaction [Unknown]
  - Retinal occlusive vasculitis [Recovered/Resolved]
  - Visual impairment [Recovering/Resolving]
  - Nasopharyngitis [Unknown]
  - Blindness transient [Recovering/Resolving]
  - Keratitis [Recovering/Resolving]
  - Retinal haemorrhage [Recovered/Resolved]
  - Intraocular pressure increased [Recovering/Resolving]
  - Retinal vein occlusion [Unknown]
  - Eye inflammation [Recovering/Resolving]
  - Macular thickening [Recovering/Resolving]
  - Retinal oedema [Recovering/Resolving]
